FAERS Safety Report 17909645 (Version 1)
Quarter: 2020Q2

REPORT INFORMATION
  Report Type: Spontaneous
  Country: US (occurrence: US)
  Receive Date: 20200617
  Receipt Date: 20200617
  Transmission Date: 20200714
  Serious: Yes (Hospitalization, Other)
  Sender: FDA-Public Use
  Company Number: US-PURDUE-USA-2020-0153011

PATIENT
  Sex: Female

DRUGS (1)
  1. HYDROCODONE BITARTRATE AND ACETAMINOPHEN [Suspect]
     Active Substance: ACETAMINOPHEN\HYDROCODONE BITARTRATE
     Indication: PRODUCT USED FOR UNKNOWN INDICATION
     Route: 048

REACTIONS (9)
  - Spinal cord injury [Unknown]
  - Memory impairment [Unknown]
  - Developmental delay [Unknown]
  - Drug dependence [Recovering/Resolving]
  - Overdose [Recovered/Resolved]
  - Learning disability [Unknown]
  - Impaired work ability [Unknown]
  - Syncope [Unknown]
  - Cognitive disorder [Unknown]
